FAERS Safety Report 9484317 (Version 1)
Quarter: 2013Q3

REPORT INFORMATION
  Report Type: Spontaneous
  Country: CA (occurrence: CA)
  Receive Date: 20130828
  Receipt Date: 20130828
  Transmission Date: 20140515
  Serious: Yes (Other)
  Sender: FDA-Public Use
  Company Number: CA-AMGEN-KDL401267

PATIENT
  Age: 53 Year
  Sex: Male

DRUGS (3)
  1. ENBREL [Suspect]
     Indication: PSORIASIS
     Dosage: UNK UNK, 2 TIMES/WK
     Route: 065
     Dates: start: 20090315
  2. FLUVOXAMINE [Concomitant]
  3. LORAZEPAM [Concomitant]

REACTIONS (2)
  - Anxiety [Unknown]
  - Depression [Not Recovered/Not Resolved]
